FAERS Safety Report 9635488 (Version 1)
Quarter: 2013Q4

REPORT INFORMATION
  Report Type: Spontaneous
  Country: US (occurrence: US)
  Receive Date: 20131021
  Receipt Date: 20131021
  Transmission Date: 20140711
  Serious: No
  Sender: FDA-Public Use
  Company Number: US-PURDUE-USA-2013-0103748

PATIENT
  Sex: Female

DRUGS (4)
  1. BUTRANS [Suspect]
     Indication: PAIN
     Dosage: 5 MCG/HR, WEEKLY
     Route: 062
     Dates: start: 20130514, end: 20130530
  2. BUTRANS [Suspect]
     Dosage: 10 MCG/HR, WEEKLY
     Route: 062
     Dates: start: 20130530
  3. VICODIN [Concomitant]
     Indication: BREAKTHROUGH PAIN
     Dosage: 2 TABLET, BID
     Route: 048
  4. SKELAXIN                           /00611501/ [Concomitant]
     Indication: MUSCLE RELAXANT THERAPY
     Dosage: 800 MG, BID
     Route: 048

REACTIONS (1)
  - Drug effect decreased [Unknown]
